FAERS Safety Report 4830863-7 (Version None)
Quarter: 2005Q4

REPORT INFORMATION
  Report Type: 
  Country: None (occurrence: None)
  Receive Date: 20051117
  Receipt Date: 20051110
  Transmission Date: 20060501
  Serious: Yes (Other)
  Sender: FDA-Public Use
  Company Number: US-MERCK-0511USA01958

PATIENT
  Sex: Male
  Weight: 88 kg

DRUGS (1)
  1. VIOXX [Suspect]
     Route: 048
     Dates: start: 20000101, end: 20001101

REACTIONS (2)
  - MYOCARDIAL INFARCTION [None]
  - OVERDOSE [None]
